FAERS Safety Report 24391950 (Version 1)
Quarter: 2024Q4

REPORT INFORMATION
  Report Type: Spontaneous
  Country: US (occurrence: US)
  Receive Date: 20241003
  Receipt Date: 20241003
  Transmission Date: 20250114
  Serious: No
  Sender: PFIZER
  Company Number: US-PFIZER INC-PV202400127895

PATIENT
  Age: 79 Year
  Sex: Female

DRUGS (1)
  1. PALBOCICLIB [Suspect]
     Active Substance: PALBOCICLIB
     Dosage: TAKE 75 MG BY MOUTH DAILY, DAILY 1-21 FOLLOWED BY 7 DAYS OFF
     Route: 048

REACTIONS (1)
  - Fatigue [Unknown]
